FAERS Safety Report 17764120 (Version 3)
Quarter: 2020Q2

REPORT INFORMATION
  Report Type: Spontaneous
  Country: ES (occurrence: ES)
  Receive Date: 20200511
  Receipt Date: 20200516
  Transmission Date: 20200714
  Serious: Yes (Death)
  Sender: FDA-Public Use
  Company Number: ES-SUN PHARMACEUTICAL INDUSTRIES LTD-2020RR-246394

PATIENT
  Age: 39 Year
  Sex: Male

DRUGS (12)
  1. MIDAZOLAM (2256A) [Concomitant]
     Active Substance: MIDAZOLAM
     Indication: SEDATION
     Dosage: 100 MILLIGRAM, DAILY
     Route: 041
     Dates: start: 20200327, end: 20200409
  2. AZITHROMYCIN ANHYDROUS. [Suspect]
     Active Substance: AZITHROMYCIN ANHYDROUS
     Indication: CORONAVIRUS INFECTION
     Dosage: 500 MILLIGRAM, DAILY
     Route: 048
     Dates: start: 20200327, end: 20200330
  3. IPRATROPIO BROMURO (1067BR) [Concomitant]
     Active Substance: IPRATROPIUM BROMIDE
     Indication: PRODUCT USED FOR UNKNOWN INDICATION
     Dosage: 20 MICROGRAM, 1DOSE/6HOUR
     Route: 055
     Dates: start: 20200404, end: 20200409
  4. CEFOTAXIMA (3840A) [Concomitant]
     Active Substance: CEFOTAXIME SODIUM
     Indication: PNEUMONIA KLEBSIELLA
     Dosage: 4 GRAM, BID
     Route: 041
     Dates: start: 20200408, end: 20200409
  5. TOCILIZUMAB (8289A) [Concomitant]
     Active Substance: TOCILIZUMAB
     Indication: CORONAVIRUS INFECTION
  6. ENOXAPARINA SODICA (2482SO) [Concomitant]
     Active Substance: ENOXAPARIN SODIUM
     Indication: PRODUCT USED FOR UNKNOWN INDICATION
     Dosage: UNK
     Route: 058
     Dates: start: 20200327, end: 20200409
  7. SALBUTAMOL (2297A) [Interacting]
     Active Substance: ALBUTEROL
     Indication: PRODUCT USED FOR UNKNOWN INDICATION
     Dosage: 0.1 MILLIGRAM, 1DOSE/6HOUR
     Route: 055
     Dates: start: 20200404, end: 20200409
  8. DOLQUINE 200 MG COMPRIMIDOS RECUBIERTOS, 30 COMPRIMIDOS [Interacting]
     Active Substance: HYDROXYCHLOROQUINE SULFATE
     Indication: CORONAVIRUS INFECTION
  9. METOCLOPRAMIDA (1958A) [Interacting]
     Active Substance: METOCLOPRAMIDE HYDROCHLORIDE
     Indication: PRODUCT USED FOR UNKNOWN INDICATION
     Dosage: 10 MILLIGRAM, TID
     Route: 042
     Dates: start: 20200329, end: 20200409
  10. PROPOFOL (2373A) [Interacting]
     Active Substance: PROPOFOL
     Indication: SEDATION
     Dosage: ()
     Route: 042
     Dates: start: 20200408, end: 20200409
  11. TOCILIZUMAB (8289A) [Concomitant]
     Active Substance: TOCILIZUMAB
     Dosage: 600 MILLIGRAM, DAILY
     Route: 042
     Dates: start: 20200327, end: 20200327
  12. DOLQUINE 200 MG COMPRIMIDOS RECUBIERTOS, 30 COMPRIMIDOS [Interacting]
     Active Substance: HYDROXYCHLOROQUINE SULFATE
     Dosage: 400 MILLIGRAM, BID
     Route: 048
     Dates: start: 20200327, end: 20200401

REACTIONS (2)
  - Sudden death [Fatal]
  - Long QT syndrome [Fatal]

NARRATIVE: CASE EVENT DATE: 202004
